FAERS Safety Report 8439439-6 (Version None)
Quarter: 2012Q2

REPORT INFORMATION
  Report Type: 
  Country: None (occurrence: None)
  Receive Date: 20120615
  Receipt Date: 20120606
  Transmission Date: 20120825
  Serious: Yes (Hospitalization)
  Sender: FDA-Public Use
  Company Number: PH-B.I. PHARMACEUTICALS,INC./RIDGEFIELD-2012-CS-00871RP

PATIENT
  Age: 50 Year
  Sex: Male

DRUGS (5)
  1. LOSARTAN POTASSIUM [Concomitant]
  2. ASPIRIN [Concomitant]
  3. TRAJENTA [Suspect]
     Indication: DIABETES MELLITUS
     Dosage: 5 MG
  4. AMLODIPINE [Concomitant]
  5. METFORMIN HCL [Concomitant]

REACTIONS (2)
  - PALPITATIONS [None]
  - DIZZINESS [None]
